FAERS Safety Report 22163184 (Version 1)
Quarter: 2023Q2

REPORT INFORMATION
  Report Type: Spontaneous
  Country: IT (occurrence: IT)
  Receive Date: 20230401
  Receipt Date: 20230401
  Transmission Date: 20230722
  Serious: Yes (Other)
  Sender: FDA-Public Use
  Company Number: IT-MINISAL02-914442

PATIENT
  Age: 57 Year
  Sex: Female

DRUGS (4)
  1. DELORAZEPAM [Suspect]
     Active Substance: DELORAZEPAM
     Indication: Drug abuse
     Dosage: 1.5 MILLIGRAM(0.5 MILLIGRAM)(ADDITIONAL INFO ON DRUG TEXT: TOOK 3 EN 0.5 MG TABLETS TOGETHER)
     Route: 048
     Dates: start: 20230212
  2. DELORAZEPAM [Suspect]
     Active Substance: DELORAZEPAM
     Indication: Major depression
  3. PAROXETINE [Suspect]
     Active Substance: PAROXETINE
     Indication: Drug abuse
     Dosage: 40 MILLIGRAM
     Route: 048
     Dates: start: 20230212
  4. PAROXETINE [Suspect]
     Active Substance: PAROXETINE
     Indication: Major depression

REACTIONS (2)
  - Drug abuse [Recovered/Resolved]
  - Toxicity to various agents [Recovered/Resolved]

NARRATIVE: CASE EVENT DATE: 20230212
